FAERS Safety Report 23842913 (Version 1)
Quarter: 2024Q2

REPORT INFORMATION
  Report Type: Spontaneous
  Country: US (occurrence: US)
  Receive Date: 20240510
  Receipt Date: 20240510
  Transmission Date: 20240715
  Serious: Yes (Other)
  Sender: FDA-Public Use
  Company Number: US-AVADEL CNS PHARMACEUTICALS, LLC-2024AVA00690

PATIENT
  Sex: Female

DRUGS (4)
  1. LUMRYZ [Suspect]
     Active Substance: SODIUM OXYBATE
     Dosage: 4.5 G
  2. LUMRYZ [Suspect]
     Active Substance: SODIUM OXYBATE
     Dosage: 6 G
  3. LUMRYZ [Suspect]
     Active Substance: SODIUM OXYBATE
     Dosage: 7.5 G
  4. LUMRYZ [Suspect]
     Active Substance: SODIUM OXYBATE
     Dosage: STARTED MEASURING OUT 8.8 G OF THE DOSE AND ONLY TAKES THAT AMOUNT (FEEL IT^S A LITTLE LIKE TAKING T

REACTIONS (8)
  - Loss of consciousness [Unknown]
  - Abdominal discomfort [Unknown]
  - Appetite disorder [Unknown]
  - Cold sweat [Unknown]
  - Hypotension [Unknown]
  - Dyspnoea [Unknown]
  - Hypopnoea [Unknown]
  - Wrong technique in product usage process [Not Recovered/Not Resolved]
